FAERS Safety Report 5713203-0 (Version None)
Quarter: 2008Q2

REPORT INFORMATION
  Report Type: 
  Country: None (occurrence: None)
  Receive Date: 20080422
  Receipt Date: 19980210
  Transmission Date: 20081010
  Serious: Yes (Death, Hospitalization)
  Sender: FDA-Public Use
  Company Number: US-ROCHE-49112

PATIENT
  Sex: Male
  Weight: 67.3 kg

DRUGS (7)
  1. SAQUINAVIR [Suspect]
     Route: 048
     Dates: start: 19950504, end: 19950529
  2. SAQUINAVIR [Suspect]
     Route: 048
     Dates: start: 19950531, end: 19950622
  3. AZT [Concomitant]
     Route: 048
  4. SEPTRA [Concomitant]
     Route: 048
  5. SEPTRA [Concomitant]
     Route: 048
  6. TYLENOL [Concomitant]
     Indication: NEUROPATHY PERIPHERAL
     Route: 048
  7. MEGACE [Concomitant]
     Indication: INCREASED APPETITE
     Route: 048
     Dates: start: 19950215

REACTIONS (2)
  - DEATH [None]
  - ULCER HAEMORRHAGE [None]
